FAERS Safety Report 14099519 (Version 1)
Quarter: 2017Q4

REPORT INFORMATION
  Report Type: Spontaneous
  Country: US (occurrence: US)
  Receive Date: 20171017
  Receipt Date: 20171017
  Transmission Date: 20180321
  Serious: No
  Sender: FDA-Public Use
  Company Number: US-ALLERGAN-1700150US

PATIENT
  Sex: Female

DRUGS (1)
  1. PYLERA [Suspect]
     Active Substance: BISMUTH SUBCITRATE POTASSIUM\METRONIDAZOLE\TETRACYCLINE HYDROCHLORIDE
     Indication: HELICOBACTER INFECTION
     Dosage: 3 CAPSULES, QID, BEFORE MEALS
     Dates: start: 20161230

REACTIONS (2)
  - Inappropriate schedule of drug administration [Unknown]
  - Diarrhoea [Not Recovered/Not Resolved]
